FAERS Safety Report 4678341-2 (Version None)
Quarter: 2005Q2

REPORT INFORMATION
  Report Type: 
  Country: None (occurrence: None)
  Receive Date: 20050527
  Receipt Date: 20050514
  Transmission Date: 20051028
  Serious: Yes (Other)
  Sender: FDA-Public Use
  Company Number: 2004242590US

PATIENT
  Age: 76 Year
  Sex: Female

DRUGS (17)
  1. CELEBREX [Suspect]
     Indication: PAIN IN EXTREMITY
     Dosage: (1 IN 1 D), ORAL
     Route: 048
     Dates: start: 20040715, end: 20040730
  2. LIPITOR [Suspect]
     Indication: ILL-DEFINED DISORDER
  3. AMOXICILLIN [Suspect]
     Indication: ILL-DEFINED DISORDER
  4. ASPIRIN [Suspect]
     Indication: ILL-DEFINED DISORDER
     Dosage: 81 MG,
  5. ETIDRONATE DISODIUM [Suspect]
     Indication: OSTEOPOROSIS
  6. GLUCOSAMINE W/CHONDROITIN SULFATES (ASCORBIC ACID, CHONDROITIN SULFATE [Suspect]
     Indication: ILL-DEFINED DISORDER
  7. ATENOLOL [Concomitant]
  8. DYAZID (HYDROCHLOROTHIAZIDE, TRIAMTERENE) [Concomitant]
  9. LISINOPRIL [Concomitant]
  10. MULTIVITAMINS (ASCORBIC ACID, ERGOCALCIFEROL, FOLIC ACID, NICOTINAMIDE [Concomitant]
  11. CALCIUM (CALCIUM) [Concomitant]
  12. ERGOCALCIFEROL (ERGOCALCIFEROL) [Concomitant]
  13. LANSOPRAZOLE [Concomitant]
  14. BUDESONIDE [Concomitant]
  15. ACETAMINOPHEN [Concomitant]
  16. ANTIHYPERTENSIVES (ANTIHYPERTENSIVES) [Concomitant]
  17. CALCITONIN SALMON [Concomitant]

REACTIONS (65)
  - ABDOMINAL DISCOMFORT [None]
  - ADJUSTMENT DISORDER [None]
  - ALDOLASE INCREASED [None]
  - ANGIONEUROTIC OEDEMA [None]
  - ARTHRALGIA [None]
  - ARTHRITIS [None]
  - BACK PAIN [None]
  - BLOOD CREATINE PHOSPHOKINASE INCREASED [None]
  - BLOOD GLUCOSE INCREASED [None]
  - BLOOD TRIGLYCERIDES INCREASED [None]
  - BREAST DISORDER FEMALE [None]
  - BREAST MICROCALCIFICATION [None]
  - CEREBROVASCULAR ACCIDENT [None]
  - CEREBROVASCULAR DISORDER [None]
  - CERVICAL POLYP [None]
  - CERVICOBRACHIAL SYNDROME [None]
  - CHEST PAIN [None]
  - COLITIS ISCHAEMIC [None]
  - CONDITION AGGRAVATED [None]
  - CORONARY ARTERY DISEASE [None]
  - COUGH [None]
  - DIZZINESS [None]
  - DRUG HYPERSENSITIVITY [None]
  - EPISTAXIS [None]
  - EXTRASYSTOLES [None]
  - GASTRITIS HAEMORRHAGIC [None]
  - GASTROOESOPHAGEAL REFLUX DISEASE [None]
  - GLUCOSE TOLERANCE IMPAIRED [None]
  - GOITRE [None]
  - HAEMATOCHEZIA [None]
  - HAEMATURIA [None]
  - HAEMORRHOIDS [None]
  - HIGH DENSITY LIPOPROTEIN INCREASED [None]
  - HYPERLIPIDAEMIA [None]
  - HYPERTENSION [None]
  - HYPOAESTHESIA [None]
  - IRRITABLE BOWEL SYNDROME [None]
  - JOINT CREPITATION [None]
  - MENINGIOMA [None]
  - MITRAL VALVE SCLEROSIS [None]
  - MYALGIA [None]
  - MYOCARDIAL ISCHAEMIA [None]
  - MYOSITIS [None]
  - OSTEOARTHRITIS [None]
  - OSTEOPOROSIS [None]
  - PAIN IN EXTREMITY [None]
  - PALPITATIONS [None]
  - PARAESTHESIA [None]
  - PLANTAR FASCIITIS [None]
  - RASH [None]
  - RECTAL HAEMORRHAGE [None]
  - RENAL CYST [None]
  - RHINITIS [None]
  - SLEEP DISORDER [None]
  - SMEAR CERVIX ABNORMAL [None]
  - SQUAMOUS CELL CARCINOMA [None]
  - SUPRAVENTRICULAR EXTRASYSTOLES [None]
  - THYROID NEOPLASM [None]
  - TRANSIENT ISCHAEMIC ATTACK [None]
  - UPPER RESPIRATORY TRACT INFECTION [None]
  - URINARY TRACT INFECTION [None]
  - VENOUS ANGIOMA OF BRAIN [None]
  - VENTRICULAR EXTRASYSTOLES [None]
  - VESTIBULITIS [None]
  - WEIGHT INCREASED [None]
